FAERS Safety Report 12172743 (Version 10)
Quarter: 2016Q3

REPORT INFORMATION
  Report Type: Spontaneous
  Country: US (occurrence: US)
  Receive Date: 20160311
  Receipt Date: 20160801
  Transmission Date: 20161109
  Serious: Yes (Other)
  Sender: FDA-Public Use
  Company Number: US-009507513-1603USA002732

PATIENT
  Age: 37 Year
  Sex: Female
  Weight: 93.42 kg

DRUGS (2)
  1. NEXPLANON [Suspect]
     Active Substance: ETONOGESTREL
     Indication: CONTRACEPTION
     Dosage: UNK
     Route: 059
     Dates: start: 20150513
  2. MEDROXYPROGESTERONE ACETATE. [Concomitant]
     Active Substance: MEDROXYPROGESTERONE ACETATE
     Dosage: 150 MG, Q3MONTH
     Route: 030
     Dates: end: 20150302

REACTIONS (6)
  - Device deployment issue [Not Recovered/Not Resolved]
  - Pregnancy with implant contraceptive [Recovered/Resolved]
  - Drug dose omission [Unknown]
  - Complication associated with device [Unknown]
  - Unintended pregnancy [Recovered/Resolved]
  - Device expulsion [Unknown]

NARRATIVE: CASE EVENT DATE: 20150513
